FAERS Safety Report 15298653 (Version 1)
Quarter: 2018Q3

REPORT INFORMATION
  Report Type: Spontaneous
  Country: DE (occurrence: DE)
  Receive Date: 20180820
  Receipt Date: 20180820
  Transmission Date: 20181010
  Serious: Yes (Hospitalization)
  Sender: FDA-Public Use
  Company Number: DE-NAPPMUNDI-DEU-2011-0007497

PATIENT
  Sex: Female

DRUGS (1)
  1. MSI MUNDIPHARMA [Suspect]
     Active Substance: MORPHINE SULFATE
     Indication: PAIN
     Dosage: UNK, QID
     Route: 042

REACTIONS (1)
  - Lymphoedema [Unknown]
